FAERS Safety Report 7956496-1 (Version None)
Quarter: 2011Q4

REPORT INFORMATION
  Report Type: 
  Country: None (occurrence: None)
  Receive Date: 20111201
  Receipt Date: 20111114
  Transmission Date: 20120403
  Serious: Yes (Hospitalization)
  Sender: FDA-Public Use
  Company Number: KR-20110003

PATIENT
  Age: 67 Year
  Sex: Male

DRUGS (1)
  1. LIPIODOL (ETHIODIZED OIL) [Suspect]
     Indication: THERAPEUTIC EMBOLISATION
     Dosage: 7 ML (7 ML,1 IN 1 TOTAL) INTRA-ARTERIAL
     Route: 013

REACTIONS (5)
  - ASPARTATE AMINOTRANSFERASE INCREASED [None]
  - PULMONARY EMBOLISM [None]
  - BLOOD BILIRUBIN INCREASED [None]
  - OFF LABEL USE [None]
  - ALANINE AMINOTRANSFERASE INCREASED [None]
